FAERS Safety Report 7617499-X (Version None)
Quarter: 2011Q3

REPORT INFORMATION
  Report Type: 
  Country: None (occurrence: None)
  Receive Date: 20110718
  Receipt Date: 20110716
  Transmission Date: 20111222
  Serious: Yes (Hospitalization, Other)
  Sender: FDA-Public Use
  Company Number: US-PFIZER INC-2011161166

PATIENT
  Age: 41 Year
  Sex: Female
  Weight: 83.9 kg

DRUGS (2)
  1. CHANTIX [Suspect]
     Indication: SMOKING CESSATION THERAPY
     Dosage: UNK
     Route: 048
     Dates: start: 20110708, end: 20110712
  2. MS CONTIN [Concomitant]
     Indication: INTERVERTEBRAL DISC DISORDER
     Dosage: 60 MG, UNK

REACTIONS (5)
  - CRYING [None]
  - OEDEMA PERIPHERAL [None]
  - HOSTILITY [None]
  - FEELING ABNORMAL [None]
  - HALLUCINATION [None]
